FAERS Safety Report 24945758 (Version 6)
Quarter: 2025Q3

REPORT INFORMATION
  Report Type: Spontaneous
  Country: US (occurrence: US)
  Receive Date: 20250209
  Receipt Date: 20250925
  Transmission Date: 20251020
  Serious: No
  Sender: BAUSCH AND LOMB
  Company Number: US-BAUSCHBL-2024BNL039133

PATIENT
  Age: 74 Year
  Sex: Female

DRUGS (6)
  1. MIEBO [Suspect]
     Active Substance: PERFLUOROHEXYLOCTANE
     Indication: Dry eye
     Route: 047
     Dates: start: 202406
  2. MIEBO [Suspect]
     Active Substance: PERFLUOROHEXYLOCTANE
  3. MIEBO [Suspect]
     Active Substance: PERFLUOROHEXYLOCTANE
  4. MIEBO [Suspect]
     Active Substance: PERFLUOROHEXYLOCTANE
  5. MIEBO [Suspect]
     Active Substance: PERFLUOROHEXYLOCTANE
  6. REPATHA [Suspect]
     Active Substance: EVOLOCUMAB
     Indication: Product used for unknown indication
     Route: 065

REACTIONS (7)
  - Eye swelling [Unknown]
  - Vision blurred [Unknown]
  - Accidental exposure to product [Unknown]
  - Exposure via skin contact [Unknown]
  - Intentional product use issue [Unknown]
  - Product use issue [Unknown]
  - Product delivery mechanism issue [Unknown]

NARRATIVE: CASE EVENT DATE: 20250130
